FAERS Safety Report 17087275 (Version 1)
Quarter: 2019Q4

REPORT INFORMATION
  Report Type: Spontaneous
  Country: IT (occurrence: IT)
  Receive Date: 20191128
  Receipt Date: 20191128
  Transmission Date: 20200122
  Serious: Yes (Hospitalization)
  Sender: FDA-Public Use
  Company Number: IT-ACCORD-162411

PATIENT
  Age: 65 Year
  Sex: Female

DRUGS (5)
  1. SOLDESAM [Concomitant]
     Active Substance: DEXAMETHASONE
     Route: 030
  2. TEMOZOLOMIDE ACCORD [Suspect]
     Active Substance: TEMOZOLOMIDE
     Indication: GLIOBLASTOMA
     Dosage: STRENGTH 100 MG
     Route: 048
     Dates: start: 20190829, end: 20191030
  3. KEPPRA [Concomitant]
     Active Substance: LEVETIRACETAM
     Dosage: STRENGTH 1000 MG
     Route: 048
  4. CIPROXIN [Concomitant]
     Active Substance: CIPROFLOXACIN
     Dosage: STRENGTH 500 MG FILM-COATED TABLETS
     Route: 048
  5. PARIET [Concomitant]
     Active Substance: RABEPRAZOLE SODIUM
     Dosage: STRENGTH 20 MG
     Route: 048

REACTIONS (3)
  - Sepsis [Recovering/Resolving]
  - Pneumonitis [Recovering/Resolving]
  - Neutropenia [Recovering/Resolving]

NARRATIVE: CASE EVENT DATE: 20191030
